FAERS Safety Report 12615419 (Version 3)
Quarter: 2017Q4

REPORT INFORMATION
  Report Type: Spontaneous
  Country: JP (occurrence: JP)
  Receive Date: 20160802
  Receipt Date: 20171011
  Transmission Date: 20180320
  Serious: Yes (Hospitalization)
  Sender: FDA-Public Use
  Company Number: JP-ELI_LILLY_AND_COMPANY-JP201607013905

PATIENT
  Age: 46 Year
  Sex: Male
  Weight: 51 kg

DRUGS (8)
  1. CYRAMZA [Suspect]
     Active Substance: RAMUCIRUMAB
     Indication: GASTRIC CANCER RECURRENT
     Dosage: 428 MG, OTHER
     Route: 041
     Dates: start: 20151002, end: 20160506
  2. DECADRON                           /00016002/ [Concomitant]
     Active Substance: DEXAMETHASONE
     Dosage: 0.825 MG, UNK
     Dates: end: 20160603
  3. CYRAMZA [Suspect]
     Active Substance: RAMUCIRUMAB
     Dosage: 428 MG, OTHER
     Route: 041
     Dates: start: 20160603, end: 20160603
  4. RANITIDINE                         /00550802/ [Concomitant]
     Indication: PROPHYLAXIS
     Dosage: 50 MG, UNK
     Dates: start: 20151002, end: 20160603
  5. PACLITAXEL. [Concomitant]
     Active Substance: PACLITAXEL
     Dosage: 130 MG, OTHER
     Route: 041
     Dates: start: 20160603, end: 20160603
  6. GRANISETRON [Concomitant]
     Active Substance: GRANISETRON
     Indication: PROPHYLAXIS
     Dosage: 3 MG, UNK
     Dates: start: 20151002, end: 20160603
  7. DECADRON                           /00016002/ [Concomitant]
     Active Substance: DEXAMETHASONE
     Indication: PROPHYLAXIS
     Dosage: 16.5 MG, UNK
     Dates: start: 20151002
  8. PACLITAXEL. [Concomitant]
     Active Substance: PACLITAXEL
     Indication: GASTRIC CANCER RECURRENT
     Dosage: 130 MG, OTHER
     Route: 041
     Dates: start: 20151002, end: 20160513

REACTIONS (1)
  - Pneumothorax spontaneous [Recovering/Resolving]

NARRATIVE: CASE EVENT DATE: 20160520
